FAERS Safety Report 14165650 (Version 4)
Quarter: 2018Q1

REPORT INFORMATION
  Report Type: Report from Study
  Country: US (occurrence: US)
  Receive Date: 20171107
  Receipt Date: 20180126
  Transmission Date: 20180508
  Serious: Yes (Other)
  Sender: FDA-Public Use
  Company Number: US-PFIZER INC-2017336382

PATIENT
  Age: 61 Year
  Sex: Female

DRUGS (1)
  1. IBRANCE [Suspect]
     Active Substance: PALBOCICLIB
     Indication: BREAST CANCER
     Dosage: 125 MG, CYCLIC [DAILY/ 3 WEEKS ON, 1 WEEK OFF]
     Route: 048
     Dates: start: 20170729

REACTIONS (11)
  - Fatigue [Not Recovered/Not Resolved]
  - Condition aggravated [Not Recovered/Not Resolved]
  - Cough [Unknown]
  - Alopecia [Recovering/Resolving]
  - White blood cell count decreased [Recovering/Resolving]
  - Corneal infection [Unknown]
  - Peripheral swelling [Unknown]
  - Ulcerative keratitis [Unknown]
  - Insomnia [Recovering/Resolving]
  - Constipation [Unknown]
  - Aphthous ulcer [Unknown]

NARRATIVE: CASE EVENT DATE: 2017
